FAERS Safety Report 7006313-1 (Version None)
Quarter: 2010Q3

REPORT INFORMATION
  Report Type: 
  Country: None (occurrence: None)
  Receive Date: 20100921
  Receipt Date: 20100920
  Transmission Date: 20110219
  Serious: Yes (Other)
  Sender: FDA-Public Use
  Company Number: US-ROXANE LABORATORIES, INC.-2010-DE-05010GD

PATIENT
  Age: 9 Year
  Sex: Female

DRUGS (5)
  1. PREDNISONE [Suspect]
     Indication: DERMATOMYOSITIS
     Dosage: 40 MG
     Route: 048
  2. PREDNISONE [Suspect]
     Dosage: 0.3 MG/KG
     Route: 048
  3. METHYLPREDNISOLONE [Suspect]
     Indication: DERMATOMYOSITIS
     Dosage: 30 MG/KG
     Route: 042
  4. METHOTREXATE [Concomitant]
     Indication: DERMATOMYOSITIS
     Dosage: 5 MG WEEKLY
     Route: 048
  5. METHOTREXATE [Concomitant]
     Dosage: 0.5 MG/KG WEEKLY
     Route: 048

REACTIONS (6)
  - ARTHRALGIA [None]
  - JOINT CONTRACTURE [None]
  - OSTEONECROSIS [None]
  - OSTEOPENIA [None]
  - OSTEOPOROSIS [None]
  - SPINAL COMPRESSION FRACTURE [None]
